FAERS Safety Report 5164395-6 (Version None)
Quarter: 2006Q4

REPORT INFORMATION
  Report Type: 
  Country: None (occurrence: None)
  Receive Date: 20061205
  Receipt Date: 20061005
  Transmission Date: 20070319
  Serious: Yes (Hospitalization)
  Sender: FDA-Public Use
  Company Number: FRWYE144206OCT06

PATIENT
  Sex: Male
  Weight: 76 kg

DRUGS (6)
  1. ENBREL [Suspect]
     Indication: RHEUMATOID ARTHRITIS
     Dosage: 50 MG TOTAL WEEKLY
     Route: 058
     Dates: start: 20040601, end: 20061001
  2. DOLIPRANE [Concomitant]
     Dosage: UNKNOWN
     Route: 048
  3. LANZOR [Concomitant]
     Route: 048
  4. SULFARLEM [Concomitant]
     Dosage: 6 TABLETS TOTAL DAILY
     Route: 048
  5. NOVATREX [Concomitant]
     Indication: RHEUMATOID ARTHRITIS
     Dosage: 10 MG TOTAL WEEKLY
     Route: 048
     Dates: start: 20020501, end: 20061001
  6. VOLTAREN [Concomitant]
     Route: 048

REACTIONS (3)
  - COLON CANCER [None]
  - METASTASES TO LYMPH NODES [None]
  - RENAL CYST [None]
